FAERS Safety Report 9555830 (Version 1)
Quarter: 2013Q3

REPORT INFORMATION
  Report Type: Spontaneous
  Country: BE (occurrence: BE)
  Receive Date: 20130926
  Receipt Date: 20130926
  Transmission Date: 20140515
  Serious: Yes (Hospitalization)
  Sender: FDA-Public Use
  Company Number: BE-JNJFOC-20130913810

PATIENT
  Sex: Female

DRUGS (14)
  1. XARELTO [Suspect]
     Indication: CEREBROVASCULAR ACCIDENT PROPHYLAXIS
     Route: 048
     Dates: start: 20130401
  2. XARELTO [Suspect]
     Indication: ATRIAL FIBRILLATION
     Route: 048
     Dates: start: 20130401
  3. VITAMIN B12 [Concomitant]
     Route: 030
  4. SPIRIVA [Concomitant]
     Route: 065
  5. MEDROL [Concomitant]
     Route: 065
  6. LYSOMUCIL [Concomitant]
     Route: 065
  7. L-THYROXINE [Concomitant]
     Route: 065
  8. LASIX [Concomitant]
     Route: 065
  9. FLUNITRAZEPAM [Concomitant]
     Route: 065
  10. EMCONCOR MITIS [Concomitant]
     Route: 065
  11. CRESTOR [Concomitant]
     Route: 065
  12. CORDARONE [Concomitant]
     Route: 065
  13. COMBIVENT [Concomitant]
     Route: 065
  14. STEOVIT D3 [Concomitant]
     Route: 065

REACTIONS (1)
  - Haemoglobin decreased [Unknown]
